FAERS Safety Report 4587211-X (Version None)
Quarter: 2005Q1

REPORT INFORMATION
  Report Type: 
  Country: None (occurrence: None)
  Receive Date: 20050218
  Receipt Date: 20050210
  Transmission Date: 20050727
  Serious: Yes (Other)
  Sender: FDA-Public Use
  Company Number: US-GLAXOSMITHKLINE-A0544961A

PATIENT
  Age: 27 Year
  Sex: Female

DRUGS (3)
  1. IMITREX [Suspect]
     Indication: MIGRAINE
     Route: 048
  2. SYNTHROID [Concomitant]
     Indication: DRUG USE FOR UNKNOWN INDICATION
  3. HUMALOG [Concomitant]
     Indication: DIABETES MELLITUS

REACTIONS (3)
  - CONVULSION [None]
  - DRUG EXPOSURE DURING PREGNANCY [None]
  - LOSS OF CONSCIOUSNESS [None]
